FAERS Safety Report 16364825 (Version 1)
Quarter: 2019Q2

REPORT INFORMATION
  Report Type: Other
  Country: ES (occurrence: ES)
  Receive Date: 20190529
  Receipt Date: 20190529
  Transmission Date: 20190711
  Serious: Yes (Other)
  Sender: FDA-Public Use
  Company Number: ES-CELLTRION INC.-2019ES021423

PATIENT

DRUGS (11)
  1. RITUXIMAB (UNKNOWN) [Suspect]
     Active Substance: RITUXIMAB
     Dosage: UNK
     Route: 065
     Dates: start: 201811
  2. RITUXIMAB (UNKNOWN) [Suspect]
     Active Substance: RITUXIMAB
     Indication: DIFFUSE LARGE B-CELL LYMPHOMA
     Dosage: UNK
     Route: 065
     Dates: start: 20160616, end: 20160927
  3. METHYLPREDNISOLONE. [Concomitant]
     Active Substance: METHYLPREDNISOLONE
     Dosage: UNK
     Route: 065
     Dates: start: 20160616, end: 20160927
  4. PREDNISONE. [Concomitant]
     Active Substance: PREDNISONE
  5. IFOSFAMIDE. [Concomitant]
     Active Substance: IFOSFAMIDE
     Dosage: UNK
     Route: 065
     Dates: start: 201811
  6. CARBOPLATIN. [Concomitant]
     Active Substance: CARBOPLATIN
     Dosage: UNK
     Route: 065
     Dates: start: 201811
  7. ETOPOSIDE. [Concomitant]
     Active Substance: ETOPOSIDE
     Dosage: UNK
     Route: 065
     Dates: start: 20160616, end: 20160927
  8. CYTARABINE. [Concomitant]
     Active Substance: CYTARABINE
     Dosage: UNK
     Route: 065
     Dates: start: 20160616, end: 20160927
  9. GEMCITABINE [Concomitant]
     Active Substance: GEMCITABINE\GEMCITABINE HYDROCHLORIDE
     Dosage: 1600 MG
     Route: 065
  10. CISPLATIN. [Concomitant]
     Active Substance: CISPLATIN
     Dosage: UNK
     Route: 065
     Dates: start: 20160616, end: 20160927
  11. VINORELBINE [Concomitant]
     Active Substance: VINORELBINE\VINORELBINE TARTRATE
     Dosage: 40 MG
     Route: 065

REACTIONS (1)
  - Seizure [Unknown]
